FAERS Safety Report 8568265 (Version 4)
Quarter: 2012Q4

REPORT INFORMATION
  Report Type: 
  Country: CA (occurrence: CA)
  Receive Date: 20120518
  Receipt Date: 20121210
  Transmission Date: 20130627
  Serious: Yes (Death, Hospitalization, Other)
  Sender: FDA-Public Use
  Company Number: PHHY2011CA21027

PATIENT
  Age: 58 Year
  Sex: Male

DRUGS (2)
  1. SANDOSTATIN LAR [Suspect]
     Indication: NEUROENDOCRINE TUMOUR
     Dosage: 30 mg, BIW
     Route: 030
     Dates: start: 20101025, end: 20121122
  2. AFINITOR [Suspect]
     Indication: NEUROENDOCRINE TUMOUR
     Dosage: 10 mg every day
     Route: 048
     Dates: start: 20110418, end: 20120416

REACTIONS (12)
  - Death [Fatal]
  - Abdominal pain [Unknown]
  - Faecal volume increased [Unknown]
  - Gastrointestinal neoplasm [Unknown]
  - Hepatic neoplasm [Unknown]
  - Poor quality sleep [Unknown]
  - Asthenia [Unknown]
  - Pallor [Unknown]
  - Fatigue [Unknown]
  - Neoplasm progression [Unknown]
  - Lymphoedema [Unknown]
  - Nausea [Unknown]
